FAERS Safety Report 19596605 (Version 1)
Quarter: 2021Q3

REPORT INFORMATION
  Report Type: Spontaneous
  Country: US (occurrence: US)
  Receive Date: 20210722
  Receipt Date: 20210722
  Transmission Date: 20211014
  Serious: No
  Sender: FDA-Public Use
  Company Number: US-AMGEN-USASP2021110466

PATIENT
  Age: 77 Year
  Sex: Male

DRUGS (3)
  1. MVASI [Suspect]
     Active Substance: BEVACIZUMAB-AWWB
     Indication: OFF LABEL USE
  2. MVASI [Suspect]
     Active Substance: BEVACIZUMAB-AWWB
     Indication: CARCINOID TUMOUR
     Dosage: 1600 MILLIGRAM, Q3WK
     Route: 065
     Dates: start: 202007
  3. TECENTRIQ [Concomitant]
     Active Substance: ATEZOLIZUMAB
     Dosage: UNK

REACTIONS (4)
  - Off label use [Unknown]
  - Visual impairment [Recovered/Resolved]
  - Flushing [Recovered/Resolved]
  - Dizziness [Recovered/Resolved]

NARRATIVE: CASE EVENT DATE: 20210604
